FAERS Safety Report 10514125 (Version 1)
Quarter: 2014Q4

REPORT INFORMATION
  Report Type: Spontaneous
  Country: HU (occurrence: HU)
  Receive Date: 20141013
  Receipt Date: 20141013
  Transmission Date: 20150528
  Serious: Yes (Hospitalization, Other)
  Sender: FDA-Public Use
  Company Number: HU-TEVA-513726ISR

PATIENT
  Sex: Female

DRUGS (1)
  1. LEFLOKIN [Suspect]
     Active Substance: LEVOFLOXACIN
     Indication: PYELONEPHRITIS

REACTIONS (2)
  - Heart rate increased [Recovered/Resolved]
  - Hypertension [Recovered/Resolved]
